FAERS Safety Report 4914921-4 (Version None)
Quarter: 2006Q1

REPORT INFORMATION
  Report Type: 
  Country: None (occurrence: None)
  Receive Date: 20060215
  Receipt Date: 20060215
  Transmission Date: 20060701
  Serious: No
  Sender: FDA-Public Use
  Company Number: None

PATIENT
  Sex: Female
  Weight: 68 kg

DRUGS (8)
  1. PIPERACILLIN AND TAZOBACTAM [Suspect]
     Indication: INFECTION
     Dosage: 3.375G IV  Q6H
     Route: 042
     Dates: start: 20060201, end: 20060203
  2. VANCOMYCIN [Concomitant]
  3. ASPIRIN [Concomitant]
  4. MONTELUKAST [Concomitant]
  5. LISINOPRIL [Concomitant]
  6. POTASSIUM [Concomitant]
  7. FUROSEMIDE [Concomitant]
  8. CLOPIDOGREL [Concomitant]

REACTIONS (2)
  - HAEMATOCRIT DECREASED [None]
  - HAEMOGLOBIN DECREASED [None]
